FAERS Safety Report 13902673 (Version 1)
Quarter: 2017Q3

REPORT INFORMATION
  Report Type: Report from Study
  Country: None (occurrence: ZA)
  Receive Date: 20170824
  Receipt Date: 20170824
  Transmission Date: 20171127
  Serious: Yes (Hospitalization)
  Sender: FDA-Public Use
  Company Number: ZA-ABBVIE-17K-143-2081890-00

PATIENT
  Sex: Female
  Weight: 66 kg

DRUGS (3)
  1. HUMIRA [Suspect]
     Active Substance: ADALIMUMAB
     Dosage: LOADING DOSE, WEEK 2
     Route: 058
     Dates: start: 201604, end: 201604
  2. HUMIRA [Suspect]
     Active Substance: ADALIMUMAB
     Indication: CROHN^S DISEASE
     Dosage: LOADING DOSE, WEEK 0
     Route: 058
     Dates: start: 20160406, end: 20160406
  3. HUMIRA [Suspect]
     Active Substance: ADALIMUMAB
     Dosage: WEEK 4 ONWARDS
     Route: 058
     Dates: start: 201605

REACTIONS (1)
  - Female genital tract fistula [Unknown]

NARRATIVE: CASE EVENT DATE: 2017
